FAERS Safety Report 7569648-X (Version None)
Quarter: 2011Q2

REPORT INFORMATION
  Report Type: 
  Country: None (occurrence: None)
  Receive Date: 20110617
  Receipt Date: 20110610
  Transmission Date: 20111010
  Serious: Yes (Hospitalization)
  Sender: FDA-Public Use
  Company Number: 2011SP027637

PATIENT
  Age: 33 Year
  Sex: Female

DRUGS (3)
  1. LEVOTHYROXINE SODIUM [Concomitant]
  2. METOPROLOL TARTRATE [Concomitant]
  3. PEG-INTRON [Suspect]
     Indication: HEPATITIS C
     Dosage: 120 MCG
     Dates: start: 20100817

REACTIONS (3)
  - BACK PAIN [None]
  - ABDOMINAL PAIN [None]
  - VOMITING [None]
